FAERS Safety Report 4765988-8 (Version None)
Quarter: 2005Q3

REPORT INFORMATION
  Report Type: 
  Country: None (occurrence: None)
  Receive Date: 20050908
  Receipt Date: 20050825
  Transmission Date: 20060218
  Serious: Yes (Death)
  Sender: FDA-Public Use
  Company Number: ZICO001282

PATIENT
  Age: 55 Year
  Sex: Male

DRUGS (10)
  1. PRIALT [Suspect]
     Dosage: 0.10 MCG/HR INTRATHECAL
     Route: 037
  2. DILAUDID [Concomitant]
  3. BUPIVACAINE [Concomitant]
  4. CLONIDINE [Concomitant]
  5. KETAMINE (KETAMINE HYDROCHLORIDE) [Concomitant]
  6. DURAGESIC-100 [Concomitant]
  7. LORCET (PARACETAMOL) [Concomitant]
  8. LIDODERM (LIDOCAINE PATCHES) [Concomitant]
  9. WELLBUTRIN [Concomitant]
  10. HYDROMORPHONE (HYDROMORPHONE HYDROCHLORIDE) [Concomitant]

REACTIONS (17)
  - AGGRESSION [None]
  - AGITATION [None]
  - ANXIETY [None]
  - APHAGIA [None]
  - CONDITION AGGRAVATED [None]
  - DEPRESSION [None]
  - FATIGUE [None]
  - FLAT AFFECT [None]
  - HALLUCINATION [None]
  - HYPERSOMNIA [None]
  - INAPPROPRIATE SCHEDULE OF DRUG ADMINISTRATION [None]
  - LETHARGY [None]
  - MEMORY IMPAIRMENT [None]
  - MUTISM [None]
  - ORAL INTAKE REDUCED [None]
  - PAIN [None]
  - SPEECH DISORDER [None]
